FAERS Safety Report 8463183-2 (Version None)
Quarter: 2012Q2

REPORT INFORMATION
  Report Type: 
  Country: None (occurrence: None)
  Receive Date: 20120323
  Receipt Date: 20111216
  Transmission Date: 20120825
  Serious: Yes (Other)
  Sender: FDA-Public Use
  Company Number: 163-21880-11111107

PATIENT
  Age: 70 Year
  Sex: Male

DRUGS (5)
  1. ZYRTEC [Concomitant]
  2. REVLIMID [Suspect]
     Indication: MULTIPLE MYELOMA
     Dosage: 10 MG, 1 IN 1 D, PO
     Route: 048
     Dates: start: 20091201
  3. RED BLOOD CELLS [Concomitant]
  4. ASPIRIN [Concomitant]
  5. REVLIMID [Suspect]
     Indication: MULTIPLE MYELOMA
     Dosage: 5 MG, QD X 28 DAYS, PO
     Route: 048
     Dates: start: 20100607, end: 20111107

REACTIONS (4)
  - BRONCHITIS [None]
  - ACUTE SINUSITIS [None]
  - UPPER RESPIRATORY TRACT INFECTION [None]
  - PANCYTOPENIA [None]
